FAERS Safety Report 26138470 (Version 1)
Quarter: 2025Q4

REPORT INFORMATION
  Report Type: Spontaneous
  Country: US (occurrence: US)
  Receive Date: 20251210
  Receipt Date: 20251210
  Transmission Date: 20260119
  Serious: Yes (Other)
  Sender: MITSUBISHI TANABE PHARMA
  Company Number: US-TANABE_PHARMA-MTPA2025-0021599

PATIENT
  Sex: Male

DRUGS (2)
  1. RADICAVA [Suspect]
     Active Substance: EDARAVONE
     Indication: Amyotrophic lateral sclerosis
     Route: 065
  2. RILUZOLE [Concomitant]
     Active Substance: RILUZOLE
     Indication: Amyotrophic lateral sclerosis
     Dosage: UNK
     Route: 065

REACTIONS (6)
  - Dysarthria [Unknown]
  - Disease progression [Unknown]
  - Gait disturbance [Unknown]
  - Muscular weakness [Unknown]
  - Activities of daily living decreased [Unknown]
  - Slow speech [Unknown]

NARRATIVE: CASE EVENT DATE: 20250801
